FAERS Safety Report 8380989-9 (Version None)
Quarter: 2012Q2

REPORT INFORMATION
  Report Type: 
  Country: None (occurrence: None)
  Receive Date: 20120511
  Receipt Date: 20120221
  Transmission Date: 20120825
  Serious: Yes (Other)
  Sender: FDA-Public Use
  Company Number: FK201200518

PATIENT
  Age: 60 Year
  Sex: Female

DRUGS (6)
  1. AERIUS (EBASTINE) [Concomitant]
  2. VOLUVEN [Suspect]
     Indication: PRODUCT USED FOR UNKNOWN INDICATION
     Dosage: INTRAVENOUS (NOT OTHERWISE SPECIFIED)
     Route: 042
     Dates: start: 20111128, end: 20111128
  3. PRAVASTATIN [Concomitant]
  4. LODOZ (BISELECT /01166101/) [Concomitant]
  5. LEXOMILE ROCHE (BROMAZEPAM) [Concomitant]
  6. VIALEBEX (ALBUMIN) (ALBUMIN) [Suspect]
     Indication: PRODUCT USED FOR UNKNOWN INDICATION
     Dosage: INTRAVENOUS (NOT OTHERWISE SPECIFIED)
     Route: 042
     Dates: start: 20101014, end: 20101014

REACTIONS (5)
  - HYPERSENSITIVITY [None]
  - HYPOTENSION [None]
  - PROCEDURAL COMPLICATION [None]
  - SEPTIC SHOCK [None]
  - ANASTOMOTIC COMPLICATION [None]
